FAERS Safety Report 9932728 (Version 1)
Quarter: 2014Q1

REPORT INFORMATION
  Report Type: Spontaneous
  Country: GB (occurrence: None)
  Receive Date: 20140226
  Receipt Date: 20140226
  Transmission Date: 20141002
  Serious: Yes (Other)
  Sender: FDA-Public Use
  Company Number: AUR-APL-2014-01878

PATIENT
  Age: 18 Year
  Sex: Male

DRUGS (1)
  1. RISPERIDON [Suspect]
     Indication: AUTISM SPECTRUM DISORDER
     Route: 048
     Dates: start: 20090408, end: 20110831

REACTIONS (6)
  - Gynaecomastia [None]
  - Weight increased [None]
  - Erectile dysfunction [None]
  - Skin striae [None]
  - Refusal of treatment by patient [None]
  - Hyperprolactinaemia [None]
